FAERS Safety Report 9336678 (Version 1)
Quarter: 2013Q2

REPORT INFORMATION
  Report Type: Report from Study
  Country: AR (occurrence: AR)
  Receive Date: 20130607
  Receipt Date: 20130607
  Transmission Date: 20140414
  Serious: Yes (Death, Hospitalization)
  Sender: FDA-Public Use
  Company Number: PHHY2013AR057558

PATIENT
  Sex: Male

DRUGS (2)
  1. GALVUS [Suspect]
     Dosage: 50 MG
     Route: 048
     Dates: start: 2012
  2. DIOVAN D [Suspect]
     Indication: BLOOD PRESSURE ABNORMAL
     Dosage: 1 DF, (160 MG VALS AND UNK MG HYDR), DAILY
     Route: 048
     Dates: start: 2012

REACTIONS (1)
  - Cardio-respiratory arrest [Fatal]
